FAERS Safety Report 6746715-1 (Version None)
Quarter: 2010Q2

REPORT INFORMATION
  Report Type: 
  Country: None (occurrence: None)
  Receive Date: 20100528
  Receipt Date: 20090504
  Transmission Date: 20101027
  Serious: No
  Sender: FDA-Public Use
  Company Number: A0782353A

PATIENT
  Age: 66 Year
  Sex: Female

DRUGS (2)
  1. VENTOLIN [Suspect]
     Indication: EMPHYSEMA
     Dosage: 2PUFF AS REQUIRED
     Route: 055
  2. ADVAIR DISKUS 100/50 [Concomitant]

REACTIONS (2)
  - DRUG INEFFECTIVE [None]
  - DYSPNOEA [None]
